FAERS Safety Report 6121309-X (Version None)
Quarter: 2009Q1

REPORT INFORMATION
  Report Type: 
  Country: None (occurrence: None)
  Receive Date: 20090312
  Receipt Date: 20090312
  Transmission Date: 20090719
  Serious: Yes (Other)
  Sender: FDA-Public Use
  Company Number: None

PATIENT
  Age: 49 Year
  Sex: Female
  Weight: 73.91 kg

DRUGS (2)
  1. MIRTAZAPINE [Suspect]
     Indication: ADJUSTMENT DISORDER WITH ANXIETY
     Dosage: 15 MG QHS PO
     Route: 048
     Dates: start: 20090203, end: 20090206
  2. MIRTAZAPINE [Suspect]
     Indication: DEPRESSION
     Dosage: 15 MG QHS PO
     Route: 048
     Dates: start: 20090203, end: 20090206

REACTIONS (1)
  - SUICIDAL IDEATION [None]
